FAERS Safety Report 25620743 (Version 1)
Quarter: 2025Q3

REPORT INFORMATION
  Report Type: Spontaneous
  Country: JP (occurrence: JP)
  Receive Date: 20250730
  Receipt Date: 20250730
  Transmission Date: 20251021
  Serious: Yes (Other)
  Sender: TEVA
  Company Number: JP-WARNER CHILCOTT-2014-000665

PATIENT

DRUGS (1)
  1. ACTONEL [Suspect]
     Active Substance: RISEDRONATE SODIUM
     Route: 048

REACTIONS (1)
  - Drug-induced liver injury [Unknown]
